FAERS Safety Report 8190295-3 (Version None)
Quarter: 2012Q1

REPORT INFORMATION
  Report Type: 
  Country: None (occurrence: None)
  Receive Date: 20120307
  Receipt Date: 20120302
  Transmission Date: 20120608
  Serious: Yes (Death)
  Sender: FDA-Public Use
  Company Number: JP-SANOFI-AVENTIS-2012SA006640

PATIENT
  Age: 63 Year
  Sex: Male
  Weight: 71 kg

DRUGS (13)
  1. ASPIRIN [Concomitant]
     Route: 048
  2. HEPARIN [Concomitant]
     Route: 042
  3. TENORMIN [Concomitant]
     Route: 048
  4. NITROGLYCERIN [Concomitant]
     Dosage: DURING CHEST PAIN
     Route: 048
  5. TENORMIN [Concomitant]
     Route: 048
  6. ISOSORBIDE MONONITRATE [Concomitant]
     Route: 048
  7. PROBUCOL [Concomitant]
     Indication: HYPERTENSION
     Route: 048
  8. VOGLIBOSE [Concomitant]
     Indication: DIABETES MELLITUS
     Route: 048
  9. AMARYL [Concomitant]
     Indication: DIABETES MELLITUS
     Route: 048
  10. ROSUVASTATIN CALCIUM [Concomitant]
     Route: 048
  11. PROTECADIN [Concomitant]
     Route: 048
  12. ISOSORBIDE DINITRATE [Concomitant]
     Dosage: ROUTE: PAD
     Route: 050
  13. PLAVIX [Suspect]
     Route: 048
     Dates: start: 20091120, end: 20100304

REACTIONS (1)
  - DEATH [None]
